FAERS Safety Report 14110773 (Version 1)
Quarter: 2017Q4

REPORT INFORMATION
  Report Type: Spontaneous
  Country: US (occurrence: None)
  Receive Date: 20171020
  Receipt Date: 20171020
  Transmission Date: 20180321
  Serious: Yes (Hospitalization)
  Sender: FDA-Public Use
  Company Number: None

PATIENT
  Age: 78 Year
  Sex: Male

DRUGS (1)
  1. DABIGATRAN [Suspect]
     Active Substance: DABIGATRAN
     Indication: ATRIAL FIBRILLATION
     Route: 048
     Dates: start: 20140124

REACTIONS (5)
  - Frequent bowel movements [None]
  - Rectal haemorrhage [None]
  - Faeces discoloured [None]
  - Hypotension [None]
  - Gastric haemorrhage [None]

NARRATIVE: CASE EVENT DATE: 20170512
